FAERS Safety Report 10065549 (Version 2)
Quarter: 2014Q2

REPORT INFORMATION
  Report Type: Spontaneous
  Country: US (occurrence: US)
  Receive Date: 20140408
  Receipt Date: 20140604
  Transmission Date: 20141212
  Serious: Yes (Death, Hospitalization)
  Sender: FDA-Public Use
  Company Number: US-INCYTE CORPORATION-2014IN000932

PATIENT
  Age: 83 Year
  Sex: Male
  Weight: 70.3 kg

DRUGS (4)
  1. JAKAFI [Suspect]
     Indication: MYELOFIBROSIS
     Dosage: 20 MG, QD
     Dates: start: 20120703, end: 20140306
  2. JAKAFI [Suspect]
     Indication: MYELODYSPLASTIC SYNDROME
     Dosage: 20 MG, QD
     Route: 048
     Dates: start: 20130205
  3. JAKAFI [Suspect]
     Indication: MYELOPROLIFERATIVE DISORDER
  4. DANAZOL [Concomitant]
     Dosage: 200 MG, BID
     Route: 048

REACTIONS (2)
  - General physical health deterioration [Fatal]
  - Abdominal pain [Unknown]
